FAERS Safety Report 15350860 (Version 2)
Quarter: 2018Q3

REPORT INFORMATION
  Report Type: Report from Study
  Country: IL (occurrence: IL)
  Receive Date: 20180905
  Receipt Date: 20180924
  Transmission Date: 20181010
  Serious: Yes (Life-Threatening, Hospitalization)
  Sender: FDA-Public Use
  Company Number: IL-EMD SERONO-9042267

PATIENT
  Sex: Female

DRUGS (2)
  1. REBIF [Suspect]
     Active Substance: INTERFERON BETA-1A
     Indication: RELAPSING-REMITTING MULTIPLE SCLEROSIS
     Dates: start: 20100916
  2. OSCAR [Concomitant]
     Indication: HYPERTENSION

REACTIONS (11)
  - Heart rate decreased [Unknown]
  - Electrocardiogram T wave inversion [Unknown]
  - Blood pressure decreased [Unknown]
  - Cardiovascular disorder [Unknown]
  - Fatigue [Unknown]
  - Electrocardiogram ST segment elevation [Unknown]
  - Asthenia [Unknown]
  - Loss of personal independence in daily activities [Unknown]
  - Chest discomfort [Unknown]
  - Ventricular fibrillation [Unknown]
  - Chest pain [Unknown]

NARRATIVE: CASE EVENT DATE: 2018
